FAERS Safety Report 15360385 (Version 2)
Quarter: 2018Q3

REPORT INFORMATION
  Report Type: Spontaneous
  Country: US (occurrence: US)
  Receive Date: 20180907
  Receipt Date: 20180911
  Transmission Date: 20181010
  Serious: No
  Sender: FDA-Public Use
  Company Number: US-PFIZER INC-2018358314

PATIENT

DRUGS (1)
  1. ADVIL PM [Suspect]
     Active Substance: DIPHENHYDRAMINE CITRATE\IBUPROFEN
     Indication: PAIN IN EXTREMITY
     Dosage: 1 DF, 1X/DAY [TOOK 1 TABLET AT BEDTIME]

REACTIONS (4)
  - Wrong dose [Unknown]
  - Intentional product misuse [Unknown]
  - Hangover [Recovered/Resolved]
  - Somnolence [Recovered/Resolved]
